FAERS Safety Report 5146922-8 (Version None)
Quarter: 2006Q4

REPORT INFORMATION
  Report Type: 
  Country: None (occurrence: None)
  Receive Date: 20061107
  Receipt Date: 20061107
  Transmission Date: 20070319
  Serious: Yes (Hospitalization)
  Sender: FDA-Public Use
  Company Number: None

PATIENT
  Sex: Female
  Weight: 82 kg

DRUGS (5)
  1. CISPLATIN [Suspect]
     Dosage: 95 MG (50MG/M2 IV DAY 2)
  2. TAXOL [Suspect]
     Dosage: 255 MG (135 MG/M2 IV OVER 24 H)
  3. LOVENOX [Concomitant]
  4. VANCOMYCIN [Concomitant]
  5. ZOSYN [Concomitant]

REACTIONS (4)
  - ASPIRATION [None]
  - DISSEMINATED INTRAVASCULAR COAGULATION [None]
  - HYPOTENSION [None]
  - SEPSIS [None]
